FAERS Safety Report 18813371 (Version 1)
Quarter: 2021Q1

REPORT INFORMATION
  Report Type: Spontaneous
  Country: US (occurrence: US)
  Receive Date: 20210131
  Receipt Date: 20210131
  Transmission Date: 20210419
  Serious: Yes (Disabling, Other)
  Sender: FDA-Public Use
  Company Number: US-PURDUE-USA-2020-0199614

PATIENT
  Sex: Female

DRUGS (3)
  1. VICODIN [Suspect]
     Active Substance: ACETAMINOPHEN\HYDROCODONE BITARTRATE
     Indication: PAIN
     Dosage: UNK
     Route: 065
  2. OXYCONTIN [Suspect]
     Active Substance: OXYCODONE HYDROCHLORIDE
     Indication: PAIN
     Dosage: UNK
     Route: 048
  3. PERCOCET                           /00446701/ [Suspect]
     Active Substance: ACETAMINOPHEN\OXYCODONE HYDROCHLORIDE\OXYCODONE TEREPHTHALATE
     Indication: PAIN
     Dosage: UNK
     Route: 065

REACTIONS (13)
  - Feeding disorder [Unknown]
  - Mental impairment [Unknown]
  - Overdose [Unknown]
  - Respiratory disorder [Unknown]
  - Vomiting [Unknown]
  - Speech disorder [Unknown]
  - Nausea [Unknown]
  - Drug dependence [Unknown]
  - General physical health deterioration [Unknown]
  - Dizziness [Unknown]
  - Amnesia [Unknown]
  - Constipation [Unknown]
  - Gait inability [Unknown]
